FAERS Safety Report 9342142 (Version 2)
Quarter: 2013Q2

REPORT INFORMATION
  Report Type: Spontaneous
  Country: JP (occurrence: JP)
  Receive Date: 20130611
  Receipt Date: 20130620
  Transmission Date: 20140414
  Serious: Yes (Other)
  Sender: FDA-Public Use
  Company Number: JP-PFIZER INC-2013174503

PATIENT
  Age: 38 Year
  Sex: Female

DRUGS (3)
  1. ADRIACIN [Suspect]
     Indication: UTERINE CANCER
     Route: 042
  2. EMEND [Suspect]
     Route: 048
  3. CISPLATIN [Concomitant]

REACTIONS (1)
  - Sick sinus syndrome [Recovered/Resolved]
